FAERS Safety Report 25036172 (Version 1)
Quarter: 2025Q1

REPORT INFORMATION
  Report Type: Spontaneous
  Country: US (occurrence: US)
  Receive Date: 20250304
  Receipt Date: 20250304
  Transmission Date: 20250408
  Serious: No
  Sender: TEVA
  Company Number: US-TEVA-VS-3298217

PATIENT
  Age: 68 Year
  Sex: Female

DRUGS (1)
  1. UZEDY [Suspect]
     Active Substance: RISPERIDONE
     Indication: Product used for unknown indication
     Dosage: INJECTABLE SUSPENSION,100/0.28MG/ML
     Route: 065
     Dates: start: 20241023

REACTIONS (9)
  - Fatigue [Unknown]
  - Aggression [Unknown]
  - Victim of abuse [Unknown]
  - Fatigue [Unknown]
  - Screaming [Unknown]
  - Living in residential institution [Unknown]
  - Dry mouth [Unknown]
  - Salivary hypersecretion [Unknown]
  - Agitation [Unknown]
